APPROVED DRUG PRODUCT: NORVASC
Active Ingredient: AMLODIPINE BESYLATE
Strength: EQ 10MG BASE
Dosage Form/Route: TABLET;ORAL
Application: N019787 | Product #003 | TE Code: AB
Applicant: VIATRIS SPECIALTY LLC
Approved: Jul 31, 1992 | RLD: Yes | RS: Yes | Type: RX